FAERS Safety Report 9384319 (Version 1)
Quarter: 2013Q3

REPORT INFORMATION
  Report Type: Spontaneous
  Country: FI (occurrence: FI)
  Receive Date: 20130705
  Receipt Date: 20130705
  Transmission Date: 20140515
  Serious: Yes (Hospitalization, Other)
  Sender: FDA-Public Use
  Company Number: PHHY2013FI068886

PATIENT
  Age: 40 Year
  Sex: Male
  Weight: 80 kg

DRUGS (6)
  1. LEPONEX / LX [Suspect]
     Indication: SCHIZOPHRENIA, PARANOID TYPE
     Dosage: 500 MG, DAILY
  2. LEPONEX / LX [Suspect]
     Dosage: 400 MG, QD
     Route: 048
     Dates: start: 20120101
  3. LEPONEX / LX [Suspect]
     Dosage: 300 MG, DAILY
     Route: 048
  4. LEPONEX / LX [Suspect]
     Dosage: 200 MG, DAILY
     Route: 048
  5. LEPONEX / LX [Suspect]
     Dosage: 100 MG, DAILY
     Route: 048
  6. LEPONEX / LX [Suspect]
     Dosage: UNK UKN, UNK
     Dates: end: 20120801

REACTIONS (5)
  - Insomnia [Recovering/Resolving]
  - Drug dependence [Unknown]
  - Hallucination [Unknown]
  - Incorrect dose administered [Unknown]
  - Fatigue [Unknown]
